FAERS Safety Report 23439642 (Version 1)
Quarter: 2024Q1

REPORT INFORMATION
  Report Type: Spontaneous
  Country: US (occurrence: None)
  Receive Date: 20240124
  Receipt Date: 20240124
  Transmission Date: 20240410
  Serious: Yes (Hospitalization)
  Sender: FDA-Public Use
  Company Number: None

PATIENT
  Sex: Male

DRUGS (2)
  1. ENTECAVIR [Suspect]
     Active Substance: ENTECAVIR
     Indication: Chronic hepatitis B
     Dosage: 1MG ONCE A DAY ORAL?
     Route: 048
     Dates: start: 201905
  2. BARACLUDE [Concomitant]
     Active Substance: ENTECAVIR

REACTIONS (1)
  - Hospitalisation [None]
